FAERS Safety Report 6678146-7 (Version None)
Quarter: 2010Q2

REPORT INFORMATION
  Report Type: 
  Country: None (occurrence: None)
  Receive Date: 20100409
  Receipt Date: 20100409
  Transmission Date: 20101027
  Serious: Yes (Death)
  Sender: FDA-Public Use
  Company Number: None

PATIENT
  Sex: Female
  Weight: 51.7 kg

DRUGS (3)
  1. SORAFINIB [Suspect]
     Indication: PANCREATIC CARCINOMA
     Dosage: SORAFINIB 400 DAILY ORAL
     Route: 048
     Dates: start: 20100118, end: 20100314
  2. SORAFINIB [Suspect]
     Indication: PANCREATIC CARCINOMA
     Dosage: SORAFINIB 400 DAILY ORAL
     Route: 048
     Dates: start: 20100128, end: 20100315
  3. ERLOTINIB [Suspect]
     Indication: PANCREATIC CARCINOMA
     Dosage: ERLOTINIB 150 DAILY ORAL
     Route: 048
     Dates: start: 20100118, end: 20100314

REACTIONS (4)
  - ABDOMINAL PAIN [None]
  - DEPRESSION [None]
  - HAEMATEMESIS [None]
  - MENTAL STATUS CHANGES [None]
